FAERS Safety Report 10221967 (Version 1)
Quarter: 2014Q2

REPORT INFORMATION
  Report Type: Spontaneous
  Country: US (occurrence: None)
  Receive Date: 20140606
  Receipt Date: 20140606
  Transmission Date: 20141212
  Serious: Yes (Disabling)
  Sender: FDA-Public Use
  Company Number: None

PATIENT
  Age: 1 Week
  Sex: Female
  Weight: 67.59 kg

DRUGS (1)
  1. GEODON [Suspect]
     Indication: MENTAL DISORDER
     Dosage: LIQUID, TWICE DAILY, TAKEN BY MOUTH
     Route: 048
     Dates: start: 20100601, end: 20140605

REACTIONS (3)
  - Palpitations [None]
  - Angina pectoris [None]
  - Pain in extremity [None]
